FAERS Safety Report 5632813-2 (Version None)
Quarter: 2008Q1

REPORT INFORMATION
  Report Type: 
  Country: None (occurrence: None)
  Receive Date: 20080221
  Receipt Date: 20080214
  Transmission Date: 20080703
  Serious: Yes (Other)
  Sender: FDA-Public Use
  Company Number: US-JNJFOC-20080203445

PATIENT
  Age: 57 Year
  Sex: Female
  Weight: 64.86 kg

DRUGS (4)
  1. REMICADE [Suspect]
     Indication: RHEUMATOID ARTHRITIS
     Route: 042
  2. METHOTREXATE [Concomitant]
     Indication: RHEUMATOID ARTHRITIS
     Route: 065
  3. HYDROXYCHLOROQUINE SULFATE [Concomitant]
     Indication: RHEUMATOID ARTHRITIS
     Route: 065
  4. PREDNISONE TAB [Concomitant]
     Indication: RHEUMATOID ARTHRITIS

REACTIONS (1)
  - RECTAL CANCER [None]
